FAERS Safety Report 5199576-9 (Version None)
Quarter: 2007Q1

REPORT INFORMATION
  Report Type: 
  Country: None (occurrence: None)
  Receive Date: 20070103
  Receipt Date: 20070103
  Transmission Date: 20070707
  Serious: Yes (Hospitalization)
  Sender: FDA-Public Use
  Company Number: None

PATIENT
  Age: 77 Year
  Sex: Female

DRUGS (1)
  1. NAFCILLIN SODIUM [Suspect]
     Indication: URINARY TRACT INFECTION
     Dosage: 2GM IV Q4 HRS
     Route: 042
     Dates: start: 20061016, end: 20061025

REACTIONS (1)
  - RENAL FAILURE ACUTE [None]
